FAERS Safety Report 7344643-4 (Version None)
Quarter: 2011Q1

REPORT INFORMATION
  Report Type: 
  Country: None (occurrence: None)
  Receive Date: 20110307
  Receipt Date: 20110307
  Transmission Date: 20110831
  Serious: Yes (Life-Threatening, Other)
  Sender: FDA-Public Use
  Company Number: None

PATIENT
  Age: 54 Year
  Sex: Male
  Weight: 99.7913 kg

DRUGS (2)
  1. VISTARIL [Suspect]
     Indication: SLEEP DISORDER THERAPY
     Dates: start: 20110216, end: 20110218
  2. HYDROXYZINE [Concomitant]

REACTIONS (4)
  - DRUG PRESCRIBING ERROR [None]
  - DRUG ADMINISTRATION ERROR [None]
  - DYSPNOEA [None]
  - INSOMNIA [None]
